FAERS Safety Report 8135331-5 (Version None)
Quarter: 2012Q1

REPORT INFORMATION
  Report Type: 
  Country: None (occurrence: None)
  Receive Date: 20120214
  Receipt Date: 20120208
  Transmission Date: 20120608
  Serious: Yes (Hospitalization)
  Sender: FDA-Public Use
  Company Number: US-BAYER-2012-013686

PATIENT
  Age: 32 Year
  Sex: Female
  Weight: 85.714 kg

DRUGS (5)
  1. YASMIN [Suspect]
  2. LEXAPRO [Concomitant]
     Dosage: 20 MG, DAILY
     Route: 048
  3. CHANTIX [Concomitant]
  4. ORAL CONTRACEPTIVE NOS [Concomitant]
     Route: 048
  5. LUNESTA [Concomitant]
     Dosage: 2 MG, HS
     Route: 048

REACTIONS (1)
  - PULMONARY EMBOLISM [None]
